FAERS Safety Report 23832502 (Version 4)
Quarter: 2025Q2

REPORT INFORMATION
  Report Type: Spontaneous
  Country: US (occurrence: US)
  Receive Date: 20240508
  Receipt Date: 20250407
  Transmission Date: 20250717
  Serious: Yes (Other)
  Sender: SANOFI AVENTIS
  Company Number: US-SA-SAC20240430000110

PATIENT
  Age: 73 Year
  Sex: Female
  Weight: 71.655 kg

DRUGS (2)
  1. KEVZARA [Suspect]
     Active Substance: SARILUMAB
     Indication: Rheumatoid arthritis
     Dosage: 200 MG, QOW
     Route: 058
     Dates: start: 202307
  2. KEVZARA [Suspect]
     Active Substance: SARILUMAB
     Indication: Polymyalgia rheumatica
     Dosage: 150 MG, QOW
     Route: 058
     Dates: start: 20240105

REACTIONS (4)
  - Polymyalgia rheumatica [Recovered/Resolved]
  - Gait inability [Recovered/Resolved]
  - Alopecia [Unknown]
  - Injection site pain [Unknown]

NARRATIVE: CASE EVENT DATE: 20240101
